FAERS Safety Report 9316819 (Version 2)
Quarter: 2013Q2

REPORT INFORMATION
  Report Type: Report from Study
  Country: KR (occurrence: KR)
  Receive Date: 20130530
  Receipt Date: 20130614
  Transmission Date: 20140414
  Serious: Yes (Hospitalization)
  Sender: FDA-Public Use
  Company Number: KR-MERCK-1305KOR014291

PATIENT
  Age: 48 Year
  Sex: Male
  Weight: 72.3 kg

DRUGS (9)
  1. VORINOSTAT [Suspect]
     Indication: GASTRIC CANCER
     Dosage: UNK, QD
     Route: 048
     Dates: start: 20130515, end: 20130523
  2. CAPECITABINE [Suspect]
     Indication: GASTRIC CANCER
     Dosage: UNK, BID
     Route: 048
     Dates: start: 20130515, end: 20130523
  3. CISPLATIN [Suspect]
     Indication: GASTRIC CANCER
     Dosage: UNK, QD
     Route: 042
     Dates: start: 20130515, end: 20130515
  4. SODIUM BICARBONATE [Concomitant]
     Indication: PROPHYLAXIS
     Dosage: GARGLE - INTERMITTENT
     Dates: start: 20130515
  5. RAMOSETRON [Concomitant]
     Indication: PROPHYLAXIS
     Dosage: UNK
     Dates: start: 20130515, end: 20130515
  6. DEXAMETHASONE [Concomitant]
     Indication: PROPHYLAXIS
     Dosage: UNK
     Dates: start: 20130515, end: 20130518
  7. RANITIDINE [Concomitant]
     Indication: PROPHYLAXIS
     Dosage: UNK
     Dates: start: 20130515, end: 20130518
  8. DEXAMETHASONE [Concomitant]
     Indication: PROPHYLAXIS
     Dosage: UNK
     Dates: start: 20130515, end: 20130515
  9. ALMAGATE [Concomitant]
     Indication: PROPHYLAXIS
     Dosage: UNK
     Dates: start: 201304

REACTIONS (1)
  - Cerebral infarction [Not Recovered/Not Resolved]
